FAERS Safety Report 9364412 (Version 1)
Quarter: 2013Q2

REPORT INFORMATION
  Report Type: Spontaneous
  Country: CN (occurrence: CN)
  Receive Date: 20130624
  Receipt Date: 20130624
  Transmission Date: 20140414
  Serious: Yes (Death, Hospitalization, Other)
  Sender: FDA-Public Use
  Company Number: CN-ACTAVIS-2013-10724

PATIENT
  Age: 13 Year
  Sex: Female

DRUGS (3)
  1. RIFAMPICIN (UNKNOWN) [Suspect]
     Indication: MENINGITIS TUBERCULOUS
     Dosage: UNK
     Route: 065
  2. ISONIAZID (WATSON LABORATORIES) [Suspect]
     Indication: MENINGITIS TUBERCULOUS
     Dosage: UNK
     Route: 065
  3. PYRAZINAMIDE [Suspect]
     Indication: MENINGITIS TUBERCULOUS
     Dosage: UNK
     Route: 065

REACTIONS (3)
  - Tuberculoma of central nervous system [Fatal]
  - Cardiac arrest [Fatal]
  - Paradoxical drug reaction [Fatal]
